FAERS Safety Report 9356976 (Version 2)
Quarter: 2013Q3

REPORT INFORMATION
  Report Type: Spontaneous
  Country: SE (occurrence: SE)
  Receive Date: 20130620
  Receipt Date: 20130701
  Transmission Date: 20140515
  Serious: Yes (Other)
  Sender: FDA-Public Use
  Company Number: SE-ROCHE-1237104

PATIENT
  Age: 27 Year
  Sex: Female

DRUGS (2)
  1. ROACCUTAN [Suspect]
     Indication: ACNE
     Route: 065
     Dates: start: 201206, end: 201301
  2. LYNESTRENOL [Concomitant]

REACTIONS (2)
  - Abortion induced [Unknown]
  - Exposure during pregnancy [Unknown]
